FAERS Safety Report 13047912 (Version 2)
Quarter: 2017Q1

REPORT INFORMATION
  Report Type: Spontaneous
  Country: US (occurrence: US)
  Receive Date: 20161220
  Receipt Date: 20170113
  Transmission Date: 20170428
  Serious: No
  Sender: FDA-Public Use
  Company Number: US-PFIZER INC-2016587121

PATIENT
  Age: 48 Year
  Sex: Female

DRUGS (3)
  1. ASPIRIN. [Suspect]
     Active Substance: ASPIRIN
     Dosage: UNK
  2. ADVIL [Suspect]
     Active Substance: IBUPROFEN
     Dosage: UNK
  3. MUCINEX [Suspect]
     Active Substance: GUAIFENESIN
     Dosage: UNK

REACTIONS (2)
  - Dyspepsia [Unknown]
  - Medication residue present [Unknown]
